FAERS Safety Report 6375733-0 (Version None)
Quarter: 2009Q3

REPORT INFORMATION
  Report Type: 
  Country: None (occurrence: None)
  Receive Date: 20090921
  Receipt Date: 20090910
  Transmission Date: 20100115
  Serious: Yes (Hospitalization)
  Sender: FDA-Public Use
  Company Number: 2009AL000595

PATIENT
  Age: 76 Year
  Sex: Female
  Weight: 71.2147 kg

DRUGS (28)
  1. DIGOXIN [Suspect]
     Dosage: 0.125MG, DAILY, PO
     Route: 048
  2. ASPIRIN [Concomitant]
  3. CALTRATE [Concomitant]
  4. CENTRUM SILVER [Concomitant]
  5. DARVOCET [Concomitant]
  6. ENALAPRIL MALEATE [Concomitant]
  7. NORVASC [Concomitant]
  8. COUMADIN [Concomitant]
  9. IRON [Concomitant]
  10. LOVENOX [Concomitant]
  11. PLAVIX [Concomitant]
  12. PRILOSEC [Concomitant]
  13. PREVACID [Concomitant]
  14. NITROGLYCERIN [Concomitant]
  15. AMITIZA [Concomitant]
  16. VASOTEC [Concomitant]
  17. MIRALAX [Concomitant]
  18. HEMATINIC PL VIT [Concomitant]
  19. AMLODIPINE [Concomitant]
  20. ZITHROMAX [Concomitant]
  21. METHYLPRED [Concomitant]
  22. CEPHALEXIN [Concomitant]
  23. ACETAMINOPHEN AND HYDROCODONE BITARTRATE [Concomitant]
  24. PROMETHAZINE [Concomitant]
  25. ALPRAZOLAM [Concomitant]
  26. CIPROFLOXACIN HYDROCHLORIDE [Concomitant]
  27. OXYCONTIN [Concomitant]
  28. BUPROPION HCL [Concomitant]

REACTIONS (43)
  - ACTIVATED PARTIAL THROMBOPLASTIN TIME PROLONGED [None]
  - ANHEDONIA [None]
  - ANXIETY [None]
  - ATRIAL FIBRILLATION [None]
  - BLOOD PRESSURE SYSTOLIC INCREASED [None]
  - CARDIAC MURMUR [None]
  - CAROTID ARTERY DISEASE [None]
  - CAROTID ARTERY STENOSIS [None]
  - CAROTID BRUIT [None]
  - CEREBRAL ATROPHY [None]
  - CHEST PAIN [None]
  - CONSTIPATION [None]
  - COUGH [None]
  - DIVERTICULUM [None]
  - DRUG INEFFECTIVE [None]
  - DYSPNOEA [None]
  - ECONOMIC PROBLEM [None]
  - EMBOLIC STROKE [None]
  - EMOTIONAL DISTRESS [None]
  - FAMILY STRESS [None]
  - HAEMATEMESIS [None]
  - HAEMATURIA [None]
  - HAEMORRHOIDS [None]
  - HYPERLIPIDAEMIA [None]
  - INTERNATIONAL NORMALISED RATIO INCREASED [None]
  - INTESTINAL RESECTION [None]
  - LOWER GASTROINTESTINAL HAEMORRHAGE [None]
  - MENTAL DISORDER [None]
  - MULTIPLE INJURIES [None]
  - MUSCULOSKELETAL CHEST PAIN [None]
  - OEDEMA PERIPHERAL [None]
  - OSTEOPENIA [None]
  - PAIN [None]
  - PANCREATIC CARCINOMA [None]
  - PROTHROMBIN TIME PROLONGED [None]
  - RENAL FAILURE ACUTE [None]
  - SOCIAL PROBLEM [None]
  - THERAPEUTIC AGENT TOXICITY [None]
  - TINNITUS [None]
  - TREATMENT NONCOMPLIANCE [None]
  - UNEVALUABLE EVENT [None]
  - VISION BLURRED [None]
  - WEIGHT DECREASED [None]
